FAERS Safety Report 6179172-7 (Version None)
Quarter: 2009Q2

REPORT INFORMATION
  Report Type: 
  Country: None (occurrence: None)
  Receive Date: 20090505
  Receipt Date: 20090428
  Transmission Date: 20091009
  Serious: Yes (Hospitalization)
  Sender: FDA-Public Use
  Company Number: FR-ASTRAZENECA-2009CG00835

PATIENT
  Age: 26638 Day
  Sex: Female

DRUGS (6)
  1. HYTACAND [Suspect]
     Dosage: 16 + 12.5 MG
     Route: 048
     Dates: end: 20090306
  2. COLCHIMAX [Suspect]
     Route: 048
     Dates: end: 20090306
  3. ZYLORIC [Suspect]
     Route: 048
     Dates: end: 20090306
  4. LASILIX RETARD [Suspect]
     Route: 048
     Dates: end: 20090306
  5. ZANIDIP [Suspect]
     Route: 048
     Dates: end: 20090306
  6. ATARAX [Suspect]
     Route: 048
     Dates: end: 20090306

REACTIONS (5)
  - DIARRHOEA [None]
  - DYSPEPSIA [None]
  - RENAL FAILURE CHRONIC [None]
  - RHABDOMYOLYSIS [None]
  - VOMITING [None]
